FAERS Safety Report 18131079 (Version 1)
Quarter: 2020Q3

REPORT INFORMATION
  Report Type: Report from Study
  Country: ES (occurrence: ES)
  Receive Date: 20200810
  Receipt Date: 20200810
  Transmission Date: 20201103
  Serious: Yes (Other)
  Sender: FDA-Public Use
  Company Number: ES-PFIZER INC-2020300171

PATIENT
  Age: 75 Year
  Sex: Male
  Weight: 59 kg

DRUGS (5)
  1. PANITUMUMAB [Suspect]
     Active Substance: PANITUMUMAB
     Indication: COLORECTAL CANCER
     Dosage: 270 MG, CYCLIC (EVERY 2 WEEKS)
     Route: 042
     Dates: start: 20200506
  2. FLUOROURACIL. [Suspect]
     Active Substance: FLUOROURACIL
     Indication: COLORECTAL CANCER
     Dosage: 520 MG, CYCLIC (EVERY 2 WEEKS)
     Route: 040
     Dates: start: 20200506
  3. FOLINIC ACID [Concomitant]
     Active Substance: LEUCOVORIN
     Indication: COLORECTAL CANCER
     Dosage: 660 MG, CYCLIC (EVERY 2 WEEKS)
     Route: 042
     Dates: start: 20200506
  4. OXALIPLATIN. [Suspect]
     Active Substance: OXALIPLATIN
     Indication: COLORECTAL CANCER
     Dosage: 110 MG, CYCLIC (EVERY 2 WEEKS)
     Route: 042
     Dates: start: 20200506
  5. FLUOROURACIL. [Suspect]
     Active Substance: FLUOROURACIL
     Dosage: 3100 MG, CYCLIC (EVERY 2 WEEKS)
     Route: 042
     Dates: start: 20200506

REACTIONS (2)
  - Decreased appetite [Not Recovered/Not Resolved]
  - Neutropenia [Not Recovered/Not Resolved]

NARRATIVE: CASE EVENT DATE: 20200714
